FAERS Safety Report 8544321-X (Version None)
Quarter: 2012Q3

REPORT INFORMATION
  Report Type: 
  Country: None (occurrence: None)
  Receive Date: 20120727
  Receipt Date: 20120723
  Transmission Date: 20120928
  Serious: Yes (Other)
  Sender: FDA-Public Use
  Company Number: US-PFIZER INC-2012178134

PATIENT
  Sex: Female
  Weight: 136.05 kg

DRUGS (14)
  1. ZITHROMAX [Suspect]
     Indication: BRONCHITIS
  2. ATIVAN [Concomitant]
     Dosage: UNK
  3. ZITHROMAX [Suspect]
     Indication: OROPHARYNGEAL PAIN
  4. AZITHROMYCIN [Suspect]
     Indication: SINUSITIS
     Dosage: UNK
  5. AZITHROMYCIN [Suspect]
     Indication: OROPHARYNGEAL PAIN
  6. AZITHROMYCIN [Suspect]
     Indication: BRONCHITIS
  7. VENLAFAXINE HCL [Suspect]
     Dosage: UNK
     Dates: start: 20120601, end: 20120601
  8. DIOVAN [Concomitant]
     Indication: HYPERTENSION
     Dosage: UNK
  9. SYNTHROID [Concomitant]
     Indication: HYPOTHYROIDISM
     Dosage: UNK
  10. FLONASE [Concomitant]
     Indication: HYPERSENSITIVITY
     Dosage: UNK
  11. EFFEXOR XR [Suspect]
     Indication: DEPRESSION
     Dosage: 37.5 MG, 1X/DAY
     Route: 048
  12. ZITHROMAX [Suspect]
     Indication: SINUSITIS
     Dosage: 250 MG, 1X/DAY
     Route: 048
  13. CLARITIN [Concomitant]
     Indication: HYPERSENSITIVITY
     Dosage: UNK
  14. PEPCID AC [Concomitant]
     Indication: GASTROOESOPHAGEAL REFLUX DISEASE
     Dosage: UNK

REACTIONS (3)
  - DIZZINESS [None]
  - PALPITATIONS [None]
  - ASTHENIA [None]
